FAERS Safety Report 23018047 (Version 1)
Quarter: 2023Q4

REPORT INFORMATION
  Report Type: Spontaneous
  Country: US (occurrence: US)
  Receive Date: 20231003
  Receipt Date: 20231003
  Transmission Date: 20240109
  Serious: No
  Sender: FDA-Public Use
  Company Number: US-002147023-NVSC2023US210216

PATIENT
  Sex: Female

DRUGS (1)
  1. PROMACTA [Suspect]
     Active Substance: ELTROMBOPAG OLAMINE
     Indication: Chronic lymphocytic leukaemia (in remission)
     Dosage: 150 MG, QD
     Route: 048
     Dates: start: 202307

REACTIONS (4)
  - Platelet count decreased [Unknown]
  - Eye disorder [Unknown]
  - Abdominal discomfort [Unknown]
  - Drug ineffective [Unknown]
